FAERS Safety Report 9326216 (Version 2)
Quarter: 2013Q4

REPORT INFORMATION
  Report Type: Spontaneous
  Country: GB (occurrence: GB)
  Receive Date: 20130604
  Receipt Date: 20131018
  Transmission Date: 20140711
  Serious: Yes (Hospitalization)
  Sender: FDA-Public Use
  Company Number: GB-SANOFI-AVENTIS-2013SA053750

PATIENT
  Age: 71 Year
  Sex: Male
  Weight: 85 kg

DRUGS (12)
  1. OXALIPLATIN [Suspect]
     Indication: PANCREATIC CARCINOMA
     Dosage: EVERY 14 DAYS
     Route: 042
     Dates: start: 20121003, end: 20121205
  2. DEXAMETHASONE [Suspect]
     Indication: PROPHYLAXIS OF NAUSEA AND VOMITING
     Route: 048
     Dates: start: 20121003, end: 20121208
  3. IRINOTECAN HYDROCHLORIDE [Suspect]
     Indication: PANCREATIC CARCINOMA
     Dosage: EVERY 2 WEEK
     Route: 042
     Dates: start: 20121003, end: 20121205
  4. 5-FU [Suspect]
     Indication: PANCREATIC CARCINOMA
     Route: 040
     Dates: start: 20121003, end: 20121207
  5. 5-FU [Suspect]
     Indication: PANCREATIC CARCINOMA
     Dosage: 800MG BOLUS THEN 4600MG OVER 46 HOURS EVERY 14 DAYS
     Route: 042
     Dates: start: 20121003, end: 20121207
  6. FOLINIC ACID [Concomitant]
  7. DOMPERIDONE [Concomitant]
  8. GRANISETRON [Concomitant]
  9. CIPROFLOXACIN [Concomitant]
  10. CREON [Concomitant]
  11. THYROXIN [Concomitant]
  12. AMLODIPINE [Concomitant]

REACTIONS (3)
  - Hypomania [Recovered/Resolved with Sequelae]
  - Depressed mood [Unknown]
  - Malaise [Unknown]
